FAERS Safety Report 10272787 (Version 1)
Quarter: 2014Q2

REPORT INFORMATION
  Report Type: Spontaneous
  Country: US (occurrence: None)
  Receive Date: 20140630
  Receipt Date: 20140630
  Transmission Date: 20141212
  Serious: No
  Sender: FDA-Public Use
  Company Number: None

PATIENT
  Sex: Female
  Weight: 77.11 kg

DRUGS (2)
  1. BUPROPION HYDROCHLORIDE SR [Suspect]
     Indication: AGITATION
     Dosage: 2 PILLS
     Route: 048
     Dates: start: 2013, end: 2014
  2. METOPROLOL [Concomitant]

REACTIONS (6)
  - Product substitution issue [None]
  - Headache [None]
  - Dizziness [None]
  - Presyncope [None]
  - Nausea [None]
  - Vomiting [None]
